FAERS Safety Report 21922425 (Version 3)
Quarter: 2024Q3

REPORT INFORMATION
  Report Type: Spontaneous
  Country: IT (occurrence: IT)
  Receive Date: 20230128
  Receipt Date: 20240702
  Transmission Date: 20241017
  Serious: Yes (Hospitalization)
  Sender: CELLTRION
  Company Number: IT-CELLTRION INC.-2023IT001427

PATIENT

DRUGS (23)
  1. HERCEPTIN [Suspect]
     Active Substance: TRASTUZUMAB
     Indication: HER2 positive breast cancer
     Dosage: 6 MG/KG ONCE IN 3 WEEKS
     Route: 042
     Dates: start: 20190531, end: 20200214
  2. HERCEPTIN [Suspect]
     Active Substance: TRASTUZUMAB
     Dosage: 6 MG/KG, ONCE IN 3 WEEKS
     Route: 042
     Dates: start: 20200702, end: 20210719
  3. TRASTUZUMAB [Suspect]
     Active Substance: TRASTUZUMAB
     Indication: HER2 positive breast cancer
     Dosage: 6 MG/KG ONCE IN 3 WEEKS MOST RECENT DOSE PRIOR TO AE 2/JUL/2020
     Route: 042
     Dates: start: 20190530, end: 20200214
  4. TRASTUZUMAB [Suspect]
     Active Substance: TRASTUZUMAB
     Dosage: 6 MG/KG, ONCE IN 3 WEEKS
     Route: 042
     Dates: start: 20200702, end: 20210719
  5. PACLITAXEL [Suspect]
     Active Substance: PACLITAXEL
     Indication: HER2 positive breast cancer
     Dosage: 80 MG/M2 ONCE WEEKLY MOST RECENT DOSE PRIOR TO AE 06/SEP/2019
     Route: 042
     Dates: start: 20190509, end: 20190906
  6. LETROZOLE [Suspect]
     Active Substance: LETROZOLE
     Indication: HER2 positive breast cancer
     Dosage: MOST RECENT DOSE PRIOR TO AE 02/MAR/2020, FREQUENCY ONCE
     Route: 048
     Dates: start: 20191030
  7. CAPECITABINE [Suspect]
     Active Substance: CAPECITABINE
     Indication: HER2 positive breast cancer
     Dosage: 2000 MG ONCE IN 2 WEEKS, MOST RECENT DOSE PRIOR TO THE EVENT: 1/MAR/2021
     Route: 048
     Dates: start: 20200702, end: 20200723
  8. CAPECITABINE [Suspect]
     Active Substance: CAPECITABINE
     Dosage: 3000 MG/KG DAILY
     Route: 048
     Dates: start: 20200723, end: 20200810
  9. CAPECITABINE [Suspect]
     Active Substance: CAPECITABINE
     Dosage: 3000 MG/KG DAILY
     Route: 048
     Dates: start: 20200911, end: 20210301
  10. CAPECITABINE [Suspect]
     Active Substance: CAPECITABINE
     Dosage: 2000 MG DAILY
     Route: 048
     Dates: start: 20210301
  11. ADO-TRASTUZUMAB EMTANSINE [Suspect]
     Active Substance: ADO-TRASTUZUMAB EMTANSINE
     Indication: HER2 positive breast cancer
     Dosage: 252 MG/KG ONCE IN 3 WEEKS MOST RECENT DOSE PRIOR TO AE 31/MAR/2020
     Route: 042
     Dates: start: 20200310
  12. FAM-TRASTUZUMAB DERUXTECAN-NXKI [Suspect]
     Active Substance: FAM-TRASTUZUMAB DERUXTECAN-NXKI
     Indication: HER2 positive breast cancer
     Dosage: 20 MG/ML ONCE IN 4 WEEKS
     Route: 042
     Dates: start: 20210818, end: 20220929
  13. PERTUZUMAB [Suspect]
     Active Substance: PERTUZUMAB
     Indication: HER2 positive breast cancer
     Dosage: 420 MG ONCE IN 3 WEEKS MOST RECENT DOSE PRIOR TO AE 14/FEB/2020
     Route: 042
     Dates: start: 20190530
  14. LEVACECARNINE HYDROCHLORIDE [Concomitant]
     Active Substance: LEVACECARNINE HYDROCHLORIDE
     Dosage: ONGOING
     Route: 065
     Dates: start: 20210119
  15. LEVOTHYROXINE SODIUM [Concomitant]
     Active Substance: LEVOTHYROXINE SODIUM
     Dosage: ONGOING
  16. LOPERAMIDE HYDROCHLORIDE [Concomitant]
     Active Substance: LOPERAMIDE HYDROCHLORIDE
     Dosage: ONGOING
  17. CITALOPRAM HYDROBROMIDE [Concomitant]
     Active Substance: CITALOPRAM HYDROBROMIDE
     Dosage: ONGOING
     Dates: start: 20200715
  18. LACTULOSE [Concomitant]
     Active Substance: LACTULOSE
     Route: 065
  19. TAZAROTENE [Concomitant]
     Active Substance: TAZAROTENE
  20. NORMAST [Concomitant]
     Dosage: ONGOING
     Dates: start: 20210119
  21. ACETAMINOPHEN\OXYCODONE HYDROCHLORIDE [Concomitant]
     Active Substance: ACETAMINOPHEN\OXYCODONE HYDROCHLORIDE
     Dosage: ONGOING
     Dates: start: 20201022
  22. PREGABALIN [Concomitant]
     Active Substance: PREGABALIN
     Dosage: ONGOING
     Dates: start: 20210119
  23. NEURONTIN [Concomitant]
     Active Substance: GABAPENTIN
     Route: 065

REACTIONS (1)
  - Anal haemorrhage [Recovered/Resolved]

NARRATIVE: CASE EVENT DATE: 20221028
